FAERS Safety Report 5992707-X (Version None)
Quarter: 2008Q4

REPORT INFORMATION
  Report Type: 
  Country: None (occurrence: None)
  Receive Date: 20081211
  Receipt Date: 20080528
  Transmission Date: 20090506
  Serious: No
  Sender: FDA-Public Use
  Company Number: US-AMGEN-KDL277023

PATIENT
  Sex: Female
  Weight: 59 kg

DRUGS (11)
  1. ENBREL [Suspect]
     Indication: RHEUMATOID ARTHRITIS
     Route: 058
     Dates: start: 19990101
  2. ARAVA [Concomitant]
     Route: 048
     Dates: start: 20060101
  3. SYNTHROID [Concomitant]
     Dates: start: 19640101
  4. MACROBID [Concomitant]
     Dates: start: 20060101
  5. GANTRISIN [Concomitant]
     Dates: start: 20060101
  6. METOPROLOL TARTRATE [Concomitant]
     Dates: start: 20000101
  7. METFORMIN HCL [Concomitant]
     Dates: start: 20000101
  8. TRAZODONE HCL [Concomitant]
     Dates: start: 20000101
  9. VYTORIN [Concomitant]
     Dates: start: 20060101
  10. ACTONEL [Concomitant]
     Dates: start: 20080502
  11. PROTONIX [Concomitant]
     Dates: start: 20000101

REACTIONS (2)
  - INJECTION SITE HAEMATOMA [None]
  - RHEUMATOID ARTHRITIS [None]
